FAERS Safety Report 9330750 (Version 1)
Quarter: 2013Q2

REPORT INFORMATION
  Report Type: Spontaneous
  Country: US (occurrence: None)
  Receive Date: 20130604
  Receipt Date: 20130604
  Transmission Date: 20140414
  Serious: No
  Sender: FDA-Public Use
  Company Number: None

PATIENT
  Age: 77 Year
  Sex: Female

DRUGS (18)
  1. DIGIFAB [Suspect]
     Indication: TOXICITY TO VARIOUS AGENTS
     Dosage: STARTING DOSE WAS 4 VIALS, TOTAL DOSE 14 VIALS
     Dates: start: 20110125
  2. CALCIUM [Concomitant]
  3. COREG [Concomitant]
  4. COREG [Concomitant]
  5. PLAVIX [Concomitant]
  6. MULTAQ [Concomitant]
  7. LASIX [Concomitant]
  8. LORCET [Concomitant]
  9. ISOSORBIDE DINITRATE [Concomitant]
  10. LEVAQUIN [Concomitant]
  11. ZYVOX [Concomitant]
  12. ZOFRAN [Concomitant]
  13. JANUVIA [Concomitant]
  14. SYMBICORT [Concomitant]
  15. SPRIVIA [Concomitant]
  16. NEURONTIN [Concomitant]
  17. VALTREX [Concomitant]
  18. SENOKOT [Concomitant]

REACTIONS (4)
  - Blood glucose increased [None]
  - Blood urea abnormal [None]
  - Blood creatinine abnormal [None]
  - Blood albumin abnormal [None]
